FAERS Safety Report 7995344-0 (Version None)
Quarter: 2011Q4

REPORT INFORMATION
  Report Type: 
  Country: None (occurrence: None)
  Receive Date: 20111220
  Receipt Date: 20111209
  Transmission Date: 20120403
  Serious: Yes (Hospitalization)
  Sender: FDA-Public Use
  Company Number: GB-JNJFOC-20111205200

PATIENT
  Sex: Female

DRUGS (4)
  1. CHLORPHENIRAMINE MALEATE [Concomitant]
     Indication: PREMEDICATION
     Route: 042
  2. REMICADE [Suspect]
     Route: 042
  3. REMICADE [Suspect]
     Indication: COLITIS ULCERATIVE
     Route: 042
  4. HYDROCORTISONE [Concomitant]
     Indication: PREMEDICATION
     Route: 042

REACTIONS (7)
  - INFUSION RELATED REACTION [None]
  - COLITIS ULCERATIVE [None]
  - TACHYCARDIA [None]
  - RASH [None]
  - OROPHARYNGEAL PAIN [None]
  - PYREXIA [None]
  - BLOOD PRESSURE DECREASED [None]
